FAERS Safety Report 25485132 (Version 1)
Quarter: 2025Q2

REPORT INFORMATION
  Report Type: Spontaneous
  Country: US (occurrence: US)
  Receive Date: 20250626
  Receipt Date: 20250626
  Transmission Date: 20250716
  Serious: No
  Sender: BIOGEN
  Company Number: US-BIOGEN-2022BI01169614

PATIENT
  Sex: Female

DRUGS (14)
  1. VUMERITY [Suspect]
     Active Substance: DIROXIMEL FUMARATE
     Indication: Multiple sclerosis
     Route: 050
     Dates: start: 20220803
  2. VUMERITY [Suspect]
     Active Substance: DIROXIMEL FUMARATE
     Dosage: TAKE 2 CAPSULES (462MG) BY MOUTH TWICE DAILY.
     Route: 050
  3. BACLOFEN [Concomitant]
     Active Substance: BACLOFEN
     Route: 050
  4. CELEBREX [Concomitant]
     Active Substance: CELECOXIB
     Route: 050
  5. HYDROCHLOROTHIAZIDE [Concomitant]
     Active Substance: HYDROCHLOROTHIAZIDE
     Route: 050
  6. LOSARTAN POTASSIUM [Concomitant]
     Active Substance: LOSARTAN POTASSIUM
     Route: 050
  7. OXYBUTYNIN CHLORIDE [Concomitant]
     Active Substance: OXYBUTYNIN CHLORIDE
     Route: 050
  8. CALCIUM [Concomitant]
     Active Substance: CALCIUM
     Route: 050
  9. VITAMIN D [Concomitant]
     Active Substance: VITAMIN D NOS
     Route: 050
  10. ELIQUIS [Concomitant]
     Active Substance: APIXABAN
     Route: 050
  11. METOPROLOL TARTRATE [Concomitant]
     Active Substance: METOPROLOL TARTRATE
     Route: 050
  12. BUMETANIDE [Concomitant]
     Active Substance: BUMETANIDE
     Route: 050
  13. POTASSIUM [Concomitant]
     Active Substance: POTASSIUM
     Route: 050
  14. FUROSEMIDE [Concomitant]
     Active Substance: FUROSEMIDE
     Route: 050

REACTIONS (7)
  - Product dose omission issue [Unknown]
  - Product dose omission in error [Unknown]
  - Bladder disorder [Unknown]
  - Balance disorder [Unknown]
  - Fatigue [Recovered/Resolved]
  - Negative thoughts [Recovered/Resolved]
  - Illness [Unknown]

NARRATIVE: CASE EVENT DATE: 20220101
